FAERS Safety Report 7223731-7 (Version None)
Quarter: 2011Q1

REPORT INFORMATION
  Report Type: 
  Country: None (occurrence: None)
  Receive Date: 20110112
  Receipt Date: 20101027
  Transmission Date: 20110831
  Serious: No
  Sender: FDA-Public Use
  Company Number: US-ALLERGAN-1013849US

PATIENT
  Age: 78 Year
  Sex: Female

DRUGS (3)
  1. XALATAN [Concomitant]
     Indication: GLAUCOMA
  2. TEARS NATURALE                     /00635701/ [Concomitant]
  3. RESTASIS [Suspect]
     Indication: DRY EYE
     Dosage: 1 GTT, SINGLE
     Route: 047
     Dates: start: 20101027

REACTIONS (1)
  - INSTILLATION SITE PAIN [None]
